FAERS Safety Report 19861063 (Version 2)
Quarter: 2021Q4

REPORT INFORMATION
  Report Type: Report from Study
  Country: HN (occurrence: HN)
  Receive Date: 20210921
  Receipt Date: 20211005
  Transmission Date: 20220303
  Serious: Yes (Other)
  Sender: FDA-Public Use
  Company Number: NVSC2021HN212288

PATIENT
  Age: 82 Year
  Sex: Female

DRUGS (2)
  1. METFORMIN HYDROCHLORIDE\VILDAGLIPTIN [Suspect]
     Active Substance: METFORMIN HYDROCHLORIDE\VILDAGLIPTIN
     Indication: Product used for unknown indication
     Dosage: 50/850 MG
     Route: 065
     Dates: start: 202104
  2. VILDAGLIPTIN [Suspect]
     Active Substance: VILDAGLIPTIN
     Indication: Product used for unknown indication
     Dosage: 50 MG
     Route: 065
     Dates: start: 2015, end: 202104

REACTIONS (8)
  - Deafness [Unknown]
  - Diabetes mellitus [Unknown]
  - Glaucoma [Unknown]
  - Aphasia [Unknown]
  - Communication disorder [Unknown]
  - Blood pressure increased [Unknown]
  - Osteoporosis [Unknown]
  - Memory impairment [Unknown]
